FAERS Safety Report 20800475 (Version 1)
Quarter: 2022Q2

REPORT INFORMATION
  Report Type: Spontaneous
  Country: FR (occurrence: FR)
  Receive Date: 20220509
  Receipt Date: 20220509
  Transmission Date: 20220720
  Serious: Yes (Hospitalization, Other)
  Sender: FDA-Public Use
  Company Number: FR-PFIZER INC-202200439087

PATIENT
  Age: 79 Year
  Sex: Female

DRUGS (14)
  1. LINEZOLID [Suspect]
     Active Substance: LINEZOLID
     Indication: Antibiotic therapy
     Dosage: UNK
     Route: 048
     Dates: start: 202105, end: 202108
  2. LINEZOLID [Suspect]
     Active Substance: LINEZOLID
     Indication: Vascular device infection
  3. LINEZOLID [Suspect]
     Active Substance: LINEZOLID
     Indication: Staphylococcal infection
  4. CEFAZOLIN [Suspect]
     Active Substance: CEFAZOLIN
     Indication: Vascular device infection
     Dosage: UNK
     Route: 065
  5. CEFAZOLIN [Suspect]
     Active Substance: CEFAZOLIN
     Indication: Staphylococcal infection
  6. DAPTOMYCIN [Suspect]
     Active Substance: DAPTOMYCIN
     Indication: Antibiotic therapy
     Dosage: UNK
     Route: 065
     Dates: start: 202105, end: 20210810
  7. DAPTOMYCIN [Suspect]
     Active Substance: DAPTOMYCIN
     Indication: Vascular device infection
  8. DAPTOMYCIN [Suspect]
     Active Substance: DAPTOMYCIN
     Indication: Staphylococcal infection
  9. RIFAMPIN [Suspect]
     Active Substance: RIFAMPIN
     Indication: Antibiotic therapy
     Dosage: UNK
     Route: 048
     Dates: start: 202105, end: 20210810
  10. RIFAMPIN [Suspect]
     Active Substance: RIFAMPIN
     Indication: Vascular device infection
  11. RIFAMPIN [Suspect]
     Active Substance: RIFAMPIN
     Indication: Staphylococcal infection
  12. SIVEXTRO [Suspect]
     Active Substance: TEDIZOLID PHOSPHATE
     Indication: Sepsis
     Dosage: UNK
     Route: 065
     Dates: start: 202109
  13. SIVEXTRO [Suspect]
     Active Substance: TEDIZOLID PHOSPHATE
     Indication: Staphylococcal infection
  14. SIVEXTRO [Suspect]
     Active Substance: TEDIZOLID PHOSPHATE
     Indication: Vascular device infection

REACTIONS (10)
  - Pancytopenia [Unknown]
  - Fall [Unknown]
  - Glomerular filtration rate abnormal [Unknown]
  - Blood creatinine increased [Unknown]
  - Gait disturbance [Unknown]
  - Drug ineffective [Unknown]
  - Product use issue [Unknown]
  - Product availability issue [Unknown]
  - Product prescribing issue [Unknown]
  - Off label use [Unknown]

NARRATIVE: CASE EVENT DATE: 20210101
